FAERS Safety Report 5630835-9 (Version None)
Quarter: 2008Q1

REPORT INFORMATION
  Report Type: 
  Country: None (occurrence: None)
  Receive Date: 20080219
  Receipt Date: 20080214
  Transmission Date: 20080703
  Serious: Yes (Hospitalization)
  Sender: FDA-Public Use
  Company Number: BR-ASTRAZENECA-2008UW03224

PATIENT
  Age: 84 Year
  Sex: Female

DRUGS (5)
  1. PULMICORT [Suspect]
     Indication: ASTHMA
     Route: 055
     Dates: start: 20080208, end: 20080212
  2. OMEPRAZOLE [Suspect]
     Route: 048
     Dates: start: 20080208, end: 20080212
  3. DEXAMETHASONE TAB [Concomitant]
     Indication: ASTHMA
     Route: 048
     Dates: start: 20080208, end: 20080212
  4. DIGOXIN [Concomitant]
     Indication: HYPERTENSION
     Route: 048
  5. AMINOPHILINE [Concomitant]
     Indication: ASTHMA
     Route: 048

REACTIONS (2)
  - DIPLEGIA [None]
  - TACHYCARDIA [None]
